FAERS Safety Report 5341220-1 (Version None)
Quarter: 2007Q2

REPORT INFORMATION
  Report Type: 
  Country: None (occurrence: None)
  Receive Date: 20070530
  Receipt Date: 20070522
  Transmission Date: 20071010
  Serious: Yes (Other)
  Sender: FDA-Public Use
  Company Number: TPA2007A00863

PATIENT
  Age: 64 Year
  Sex: Female
  Weight: 69 kg

DRUGS (8)
  1. ACTOS [Suspect]
     Indication: DIABETES MELLITUS NON-INSULIN-DEPENDENT
     Dosage: PER ORAL
     Route: 048
     Dates: start: 20001205
  2. ENALAPRIL (ENALAPRIL) [Concomitant]
  3. LIPITOR [Concomitant]
  4. CALCIUM + D (CALCIUM, VITAMIN D NOS) [Concomitant]
  5. FOLIC ACID [Concomitant]
  6. SENIOR MULTI-VITAMIN(ERGOCALCIFEROL, ASCORBIC ACID, FOLIC ACID, THIAMI [Concomitant]
  7. ASPIRIN [Concomitant]
  8. VASOTEC [Concomitant]

REACTIONS (3)
  - FALL [None]
  - FOOT FRACTURE [None]
  - OSTEOPENIA [None]
